FAERS Safety Report 14392913 (Version 1)
Quarter: 2018Q1

REPORT INFORMATION
  Report Type: Spontaneous
  Country: US (occurrence: US)
  Receive Date: 20180116
  Receipt Date: 20180116
  Transmission Date: 20180509
  Serious: No
  Sender: FDA-Public Use
  Company Number: US-NOVOPROD-570322

PATIENT
  Age: 65 Year
  Sex: Female

DRUGS (1)
  1. TRESIBA FLEXTOUCH U200 [Suspect]
     Active Substance: INSULIN DEGLUDEC
     Indication: TYPE 2 DIABETES MELLITUS
     Dosage: 95 U, QD IN THE AM
     Route: 058
     Dates: start: 20170307, end: 20171027

REACTIONS (4)
  - Fatigue [Recovered/Resolved]
  - Swollen tongue [Unknown]
  - Somnolence [Recovered/Resolved]
  - Pruritus generalised [Unknown]

NARRATIVE: CASE EVENT DATE: 2017
